FAERS Safety Report 4455331-6 (Version None)
Quarter: 2004Q3

REPORT INFORMATION
  Report Type: 
  Country: None (occurrence: None)
  Receive Date: 20040825
  Receipt Date: 20040621
  Transmission Date: 20050211
  Serious: No
  Sender: FDA-Public Use
  Company Number: 207321

PATIENT
  Age: 48 Year
  Sex: Male

DRUGS (1)
  1. RAPTIVA [Suspect]
     Indication: PSORIASIS
     Dosage: 0.9 ML,1/WEEK,SUBCUTANEOUS
     Route: 058

REACTIONS (3)
  - ARTHRALGIA [None]
  - EYE REDNESS [None]
  - MIGRAINE [None]
